FAERS Safety Report 9055403 (Version 1)
Quarter: 2013Q1

REPORT INFORMATION
  Report Type: Spontaneous
  Country: US (occurrence: US)
  Receive Date: 20130206
  Receipt Date: 20130206
  Transmission Date: 20140127
  Serious: Yes (Other)
  Sender: FDA-Public Use
  Company Number: US-SHIRE-ALL1-2013-00501

PATIENT
  Sex: Female

DRUGS (1)
  1. CARBATROL [Suspect]
     Indication: TRIGEMINAL NEURALGIA
     Dosage: 300 MG, 4X/DAY:QID
     Route: 048
     Dates: start: 2003, end: 20130109

REACTIONS (2)
  - Breast cancer [Unknown]
  - Drug prescribing error [Recovered/Resolved]
